FAERS Safety Report 5231353-2 (Version None)
Quarter: 2007Q1

REPORT INFORMATION
  Report Type: 
  Country: None (occurrence: None)
  Receive Date: 20070205
  Receipt Date: 20070205
  Transmission Date: 20070707
  Serious: Yes (Death, Life-Threatening)
  Sender: FDA-Public Use
  Company Number: None

PATIENT
  Age: 66 Year
  Sex: Female
  Weight: 112 kg

DRUGS (2)
  1. STERILE TALC POWDER 5GM BRYON CORPORATION [Suspect]
     Indication: DISEASE RECURRENCE
     Dosage: 5 GM ONCE INTRAPLEURA
     Route: 034
     Dates: start: 20070109, end: 20070109
  2. STERILE TALC POWDER 5GM BRYON CORPORATION [Suspect]
     Indication: MALIGNANT PLEURAL EFFUSION
     Dosage: 5 GM ONCE INTRAPLEURA
     Route: 034
     Dates: start: 20070109, end: 20070109

REACTIONS (1)
  - ACUTE RESPIRATORY DISTRESS SYNDROME [None]
